FAERS Safety Report 23287192 (Version 1)
Quarter: 2023Q4

REPORT INFORMATION
  Report Type: Spontaneous
  Country: US (occurrence: US)
  Receive Date: 20231212
  Receipt Date: 20231212
  Transmission Date: 20240109
  Serious: Yes (Hospitalization, Other)
  Sender: FDA-Public Use
  Company Number: US-009507513-2312USA004221

PATIENT
  Age: 65 Year
  Sex: Male

DRUGS (4)
  1. CUBICIN [Suspect]
     Active Substance: DAPTOMYCIN
     Indication: Arthritis bacterial
     Dosage: 8 MILLIGRAM/KILOGRAM, QD
     Route: 042
  2. CUBICIN [Suspect]
     Active Substance: DAPTOMYCIN
     Indication: Staphylococcal bacteraemia
  3. CEFTAROLINE [Concomitant]
     Active Substance: CEFTAROLINE
     Indication: Arthritis bacterial
     Dosage: UNK
     Route: 042
  4. CEFTAROLINE [Concomitant]
     Active Substance: CEFTAROLINE
     Indication: Staphylococcal bacteraemia

REACTIONS (2)
  - Eosinophilic pneumonia [Unknown]
  - Incorrect dose administered [Unknown]
